FAERS Safety Report 9399823 (Version 3)
Quarter: 2013Q3

REPORT INFORMATION
  Report Type: Spontaneous
  Country: US (occurrence: US)
  Receive Date: 20130715
  Receipt Date: 20130827
  Transmission Date: 20140515
  Serious: No
  Sender: FDA-Public Use
  Company Number: US-JNJFOC-20130706518

PATIENT
  Age: 42 Year
  Sex: Male
  Weight: 102.06 kg

DRUGS (13)
  1. DURAGESIC [Suspect]
     Indication: PAIN
     Route: 062
  2. DURAGESIC [Suspect]
     Indication: PAIN
     Route: 062
  3. DURAGESIC [Suspect]
     Indication: PAIN
     Route: 062
     Dates: start: 2013
  4. IBUPROFEN [Concomitant]
     Indication: PAIN
     Route: 048
     Dates: start: 2013
  5. COGENTIN [Concomitant]
     Indication: PRODUCT USED FOR UNKNOWN INDICATION
     Route: 048
  6. CYMBALTA [Concomitant]
     Indication: ANTIDEPRESSANT THERAPY
     Route: 048
     Dates: start: 2013
  7. CYMBALTA [Concomitant]
     Indication: PAIN
     Route: 048
     Dates: start: 2013
  8. DOXEPIN [Concomitant]
     Indication: SLEEP DISORDER THERAPY
     Route: 048
  9. KLONOPIN [Concomitant]
     Indication: POST-TRAUMATIC STRESS DISORDER
     Route: 048
  10. KLONOPIN [Concomitant]
     Indication: ANXIETY
     Route: 048
  11. MINIPRESS [Concomitant]
     Indication: HYPERTENSION
     Route: 048
     Dates: start: 2013
  12. PROLIXIN [Concomitant]
     Indication: SCHIZOAFFECTIVE DISORDER
     Route: 048
  13. HYDROCODONE [Concomitant]
     Indication: PAIN
     Dosage: 10/325 MG AS NEEDED
     Route: 048
     Dates: start: 2013

REACTIONS (5)
  - Product quality issue [Not Recovered/Not Resolved]
  - Wrong technique in drug usage process [Unknown]
  - Wrong technique in drug usage process [Unknown]
  - Drug ineffective [Unknown]
  - Wrong technique in drug usage process [Unknown]
